FAERS Safety Report 15493413 (Version 1)
Quarter: 2018Q4

REPORT INFORMATION
  Report Type: Spontaneous
  Country: NP (occurrence: NP)
  Receive Date: 20181012
  Receipt Date: 20181012
  Transmission Date: 20190205
  Serious: Yes (Death, Other)
  Sender: FDA-Public Use
  Company Number: NP-GLAXOSMITHKLINE-NP2018184213

PATIENT
  Age: 17 Year
  Sex: Female

DRUGS (4)
  1. DICLOFENAC SODIUM. [Suspect]
     Active Substance: DICLOFENAC SODIUM
     Indication: VOMITING
     Dosage: UNK
     Route: 065
  2. DICLOFENAC SODIUM. [Suspect]
     Active Substance: DICLOFENAC SODIUM
     Indication: ABDOMINAL PAIN
  3. HYOSCINE HYDROBROMIDE [Suspect]
     Active Substance: SCOPOLAMINE
     Indication: ABDOMINAL PAIN
  4. HYOSCINE HYDROBROMIDE [Suspect]
     Active Substance: SCOPOLAMINE
     Indication: VOMITING
     Dosage: UNK
     Route: 065

REACTIONS (19)
  - Neuropathy peripheral [Fatal]
  - Coma [Fatal]
  - Hypertension [Fatal]
  - Chromaturia [Fatal]
  - Sedation [Unknown]
  - Productive cough [Unknown]
  - Crepitations [Unknown]
  - Somnolence [Fatal]
  - Respiratory failure [Fatal]
  - Pneumonia aspiration [Unknown]
  - Porphyria acute [Fatal]
  - Generalised tonic-clonic seizure [Fatal]
  - Quadriplegia [Fatal]
  - Respiratory rate increased [Fatal]
  - Inappropriate antidiuretic hormone secretion [Fatal]
  - Heart rate increased [Fatal]
  - Urinary incontinence [Fatal]
  - Cough [Unknown]
  - Pyrexia [Unknown]
